FAERS Safety Report 19673630 (Version 1)
Quarter: 2021Q3

REPORT INFORMATION
  Report Type: Spontaneous
  Country: FR (occurrence: FR)
  Receive Date: 20210809
  Receipt Date: 20210809
  Transmission Date: 20211014
  Serious: Yes (Hospitalization, Other)
  Sender: FDA-Public Use
  Company Number: FR-AMGEN-FRASP2021119255

PATIENT
  Age: 65 Year
  Sex: Female
  Weight: 60 kg

DRUGS (13)
  1. SERESTA [Suspect]
     Active Substance: OXAZEPAM
     Indication: ANXIETY
     Dosage: 80 MILLIGRAM, QD
     Route: 048
  2. OXYCODONE HYDROCHLORIDE. [Suspect]
     Active Substance: OXYCODONE HYDROCHLORIDE
     Indication: PAIN
     Dosage: 140 MILLIGRAM, QD
     Route: 048
  3. DEXAMETHASONE ACETATE [Suspect]
     Active Substance: DEXAMETHASONE ACETATE
     Indication: PLASMA CELL MYELOMA
     Dosage: UNK
     Route: 041
     Dates: start: 20210118, end: 202103
  4. TRIMETHOPRIME [Suspect]
     Active Substance: TRIMETHOPRIM
     Indication: OPPORTUNISTIC INFECTION PROPHYLAXIS
     Dosage: 160 MILLIGRAM, QWK
     Route: 048
  5. FOLINIC ACID [Suspect]
     Active Substance: LEUCOVORIN
     Indication: VITAMIN SUPPLEMENTATION
     Dosage: 5 MILLIGRAM, QD
     Route: 048
  6. DEXAMETHASONE ACETATE [Suspect]
     Active Substance: DEXAMETHASONE ACETATE
     Indication: CRYOGLOBULINAEMIA
  7. KYPROLIS [Suspect]
     Active Substance: CARFILZOMIB
     Indication: PLASMA CELL MYELOMA
     Dosage: J1, J2 ET J8, J9
     Route: 041
     Dates: start: 20210118, end: 20210323
  8. KYPROLIS [Suspect]
     Active Substance: CARFILZOMIB
     Indication: CRYOGLOBULINAEMIA
  9. MIRTAZAPINE. [Suspect]
     Active Substance: MIRTAZAPINE
     Indication: DEPRESSION
     Dosage: 30 MILLIGRAM, QD
     Route: 048
  10. SULFAMETHOXAZOLE [Suspect]
     Active Substance: SULFAMETHOXAZOLE
     Indication: OPPORTUNISTIC INFECTION PROPHYLAXIS
     Dosage: 800 MILLIGRAM, QWK
     Route: 048
  11. ACEPONATE D^HYDROCORTISONE [Suspect]
     Active Substance: HYDROCORTISONE ACEPONATE
     Indication: SECONDARY ADRENOCORTICAL INSUFFICIENCY
     Dosage: 30 MILLIGRAM, QD
     Route: 048
  12. DARZALEX [Suspect]
     Active Substance: DARATUMUMAB
     Indication: CRYOGLOBULINAEMIA
     Dosage: 920 MILLIGRAM, QWK
     Route: 041
     Dates: start: 20210210, end: 20210329
  13. DARZALEX [Suspect]
     Active Substance: DARATUMUMAB
     Indication: PLASMA CELL MYELOMA
     Dosage: 1800 MILLIGRAM, Q2WK
     Route: 058
     Dates: start: 20210413

REACTIONS (1)
  - Uveitis [Not Recovered/Not Resolved]

NARRATIVE: CASE EVENT DATE: 202104
